FAERS Safety Report 15423509 (Version 1)
Quarter: 2018Q3

REPORT INFORMATION
  Report Type: Spontaneous
  Country: US (occurrence: US)
  Receive Date: 20180925
  Receipt Date: 20180925
  Transmission Date: 20181010
  Serious: No
  Sender: FDA-Public Use
  Company Number: US-PFIZER INC-2018381028

PATIENT
  Sex: Male

DRUGS (2)
  1. PROAIR [SALBUTAMOL SULFATE] [Concomitant]
     Dosage: UNK, 4X/DAY
  2. PRISTIQ EXTENDED?RELEASE [Suspect]
     Active Substance: DESVENLAFAXINE SUCCINATE
     Dosage: UNK

REACTIONS (3)
  - Disorientation [Unknown]
  - Panic attack [Unknown]
  - Abnormal behaviour [Unknown]
